FAERS Safety Report 10783254 (Version 1)
Quarter: 2015Q1

REPORT INFORMATION
  Report Type: Spontaneous
  Country: US (occurrence: US)
  Receive Date: 20150210
  Receipt Date: 20150210
  Transmission Date: 20150721
  Serious: No
  Sender: FDA-Public Use
  Company Number: US-GLAXOSMITHKLINE-A1068533A

PATIENT

DRUGS (5)
  1. LUPRON DEPOT [Concomitant]
     Active Substance: LEUPROLIDE ACETATE
     Indication: UTERINE LEIOMYOMA
  2. IRON [Concomitant]
     Active Substance: IRON
  3. ZOFRAN [Suspect]
     Active Substance: ONDANSETRON HYDROCHLORIDE
     Indication: NAUSEA
     Dosage: 8MG
     Route: 065
     Dates: start: 20140205
  4. LUPRON DEPOT [Concomitant]
     Active Substance: LEUPROLIDE ACETATE
     Indication: ENDOMETRIOSIS
     Dosage: 11.25MG
     Route: 065
     Dates: start: 20140127
  5. NORETHINDRONE ACETATE TABLET [Suspect]
     Active Substance: NORETHINDRONE ACETATE
     Indication: NAUSEA
     Dosage: 0.5MG
     Route: 065
     Dates: start: 20140205

REACTIONS (1)
  - Somnolence [Unknown]

NARRATIVE: CASE EVENT DATE: 20140205
